FAERS Safety Report 9896950 (Version 4)
Quarter: 2015Q2

REPORT INFORMATION
  Report Type: Report from Study
  Country: US (occurrence: US)
  Receive Date: 20140214
  Receipt Date: 20150430
  Transmission Date: 20150821
  Serious: Yes (Other)
  Sender: FDA-Public Use
  Company Number: US-BIOGENIDEC-2014BI012853

PATIENT
  Age: 59 Year
  Sex: Female

DRUGS (8)
  1. MAGNESIUM CITRATE. [Concomitant]
     Active Substance: MAGNESIUM CITRATE
     Route: 048
  2. VAGIFEM [Concomitant]
     Active Substance: ESTRADIOL
     Dosage: DOSE UNIT:10
  3. EFUDEX [Concomitant]
     Active Substance: FLUOROURACIL
  4. ADVIL [Concomitant]
     Active Substance: IBUPROFEN
  5. TYSABRI [Suspect]
     Active Substance: NATALIZUMAB
     Indication: MULTIPLE SCLEROSIS
     Route: 042
     Dates: start: 20070214
  6. OMEGA-3 FATTY ACIDS [Concomitant]
     Active Substance: OMEGA-3 FATTY ACIDS
  7. ATIVAN [Concomitant]
     Active Substance: LORAZEPAM
  8. KELP [Concomitant]
     Active Substance: KELP
     Route: 048

REACTIONS (3)
  - Intraductal proliferative breast lesion [Recovered/Resolved]
  - Prescribed underdose [Unknown]
  - Breast pain [Unknown]

NARRATIVE: CASE EVENT DATE: 2009
